FAERS Safety Report 22350337 (Version 1)
Quarter: 2023Q2

REPORT INFORMATION
  Report Type: Spontaneous
  Country: TR (occurrence: TR)
  Receive Date: 20230522
  Receipt Date: 20230522
  Transmission Date: 20230721
  Serious: Yes (Disabling)
  Sender: FDA-Public Use
  Company Number: TR-LGC-012007

PATIENT
  Age: 43 Year
  Sex: Female
  Weight: 64 kg

DRUGS (5)
  1. FACTIVE [Suspect]
     Active Substance: GEMIFLOXACIN MESYLATE
     Indication: Asthma
     Route: 048
     Dates: start: 20230504, end: 20230510
  2. QALYVIZ 0.25 mcg soft capsule (Calcitriol) [Concomitant]
  3. EUTHYROX 100 mcg tablet (Levothyroxine sodium) [Concomitant]
     Indication: Thyroid disorder
  4. QALYVIZ 0.5 mcg soft capsule (Calcitriol) [Concomitant]
  5. EUTHYROX 75 mcg tablet (Levothyroxine sodium) [Concomitant]
     Indication: Thyroid disorder

REACTIONS (5)
  - Enlarged uvula [Recovered/Resolved]
  - Skin burning sensation [Not Recovered/Not Resolved]
  - Rash [Not Recovered/Not Resolved]
  - Pruritus [Not Recovered/Not Resolved]
  - Skin irritation [Not Recovered/Not Resolved]

NARRATIVE: CASE EVENT DATE: 20230511
